FAERS Safety Report 12618442 (Version 1)
Quarter: 2016Q3

REPORT INFORMATION
  Report Type: Spontaneous
  Country: AU (occurrence: AU)
  Receive Date: 20160803
  Receipt Date: 20160803
  Transmission Date: 20161109
  Serious: Yes (Other)
  Sender: FDA-Public Use
  Company Number: AU-GLAXOSMITHKLINE-AU2016GSK110069

PATIENT
  Age: 22 Year
  Sex: Male

DRUGS (6)
  1. ACITRETIN. [Suspect]
     Active Substance: ACITRETIN
     Dosage: 25 MG, THRICE A WEEK
     Route: 048
  2. CLOBETASOL PROPIONATE. [Concomitant]
     Active Substance: CLOBETASOL PROPIONATE
     Indication: LICHEN PLANUS
     Dosage: UNK, QID
     Route: 061
  3. ACITRETIN. [Suspect]
     Active Substance: ACITRETIN
     Indication: LICHEN PLANUS
     Dosage: 25 MG, QD
     Route: 048
  4. LIGNOCAINE [Concomitant]
     Active Substance: LIDOCAINE HYDROCHLORIDE
     Indication: ANALGESIC THERAPY
     Route: 061
  5. PREDNISOLONE. [Concomitant]
     Active Substance: PREDNISOLONE
     Indication: LICHEN PLANUS
     Dosage: 37.5 MG, QD
     Route: 048
  6. PRILOCAINE [Concomitant]
     Active Substance: PRILOCAINE
     Indication: ANALGESIC THERAPY
     Route: 061

REACTIONS (2)
  - Suicidal ideation [Recovered/Resolved]
  - Disease recurrence [Unknown]
